FAERS Safety Report 4487832-9 (Version None)
Quarter: 2004Q4

REPORT INFORMATION
  Report Type: 
  Country: None (occurrence: None)
  Receive Date: 20041025
  Receipt Date: 20040917
  Transmission Date: 20050328
  Serious: Yes (Other)
  Sender: FDA-Public Use
  Company Number: S04-CAN-07034-01

PATIENT
  Age: 88 Year
  Sex: Female

DRUGS (10)
  1. CELEXA [Suspect]
     Dosage: 40 MG QD PO
     Route: 048
  2. ARICEPT [Suspect]
     Dosage: 10 MG QD PO
     Route: 048
  3. ACETAMINOPHEN [Concomitant]
  4. CRESTOR [Concomitant]
  5. ACETYLSALICYLIC ACID SRT [Concomitant]
  6. MULTI-VITAMINS [Concomitant]
  7. PHENYTOIN [Suspect]
     Dosage: 300 MG QD PO
     Route: 048
  8. SEROQUEL [Suspect]
     Dosage: 25 MG QD PO
     Route: 048
  9. ZYPREXA [Suspect]
     Dosage: 3.75 MG QD PO
     Route: 048
  10. SENNA [Concomitant]

REACTIONS (2)
  - DEPRESSED LEVEL OF CONSCIOUSNESS [None]
  - OPISTHOTONUS [None]
